FAERS Safety Report 9708313 (Version 4)
Quarter: 2014Q1

REPORT INFORMATION
  Report Type: Spontaneous
  Country: JP (occurrence: JP)
  Receive Date: 20131125
  Receipt Date: 20140319
  Transmission Date: 20141002
  Serious: Yes (Death, Life-Threatening, Hospitalization)
  Sender: FDA-Public Use
  Company Number: JP-PFIZER INC-2013332989

PATIENT
  Age: 69 Year
  Sex: Male
  Weight: 63.1 kg

DRUGS (4)
  1. SUTENT [Suspect]
     Indication: RENAL CELL CARCINOMA
     Dosage: 37.5 MG, DAILY
     Route: 048
     Dates: start: 20131101, end: 20131116
  2. TRAMCET [Suspect]
     Indication: BACK PAIN
     Dosage: 1 TABLET, 3X/DAY
     Route: 048
     Dates: start: 20131112, end: 20131116
  3. DICLOFENAC [Suspect]
     Indication: PAIN
     Dosage: 1 PATCH, 1X/DAY
     Route: 062
     Dates: start: 20131113, end: 20131116
  4. AMLODIPINE [Concomitant]
     Indication: HYPERTENSION
     Dosage: 2.5 MG, UNK
     Route: 048
     Dates: start: 20131110

REACTIONS (9)
  - Disease progression [Fatal]
  - Renal cell carcinoma [Fatal]
  - Drug hypersensitivity [Recovered/Resolved with Sequelae]
  - Renal impairment [Recovering/Resolving]
  - Hepatic function abnormal [Recovering/Resolving]
  - Depressed level of consciousness [Recovered/Resolved with Sequelae]
  - Dyspepsia [Recovered/Resolved]
  - Decreased appetite [Unknown]
  - Platelet count decreased [Recovered/Resolved]
